FAERS Safety Report 20257099 (Version 1)
Quarter: 2021Q4

REPORT INFORMATION
  Report Type: Report from Study
  Country: ES (occurrence: ES)
  Receive Date: 20211230
  Receipt Date: 20211230
  Transmission Date: 20220303
  Serious: Yes (Death, Other)
  Sender: FDA-Public Use
  Company Number: ES-ELI_LILLY_AND_COMPANY-ES202112011842

PATIENT

DRUGS (3)
  1. GEMCITABINE HYDROCHLORIDE [Suspect]
     Active Substance: GEMCITABINE HYDROCHLORIDE
     Indication: Adenocarcinoma pancreas
     Dosage: UNK, UNKNOWN
     Route: 065
  2. PACLITAXEL [Concomitant]
     Active Substance: PACLITAXEL
     Indication: Adenocarcinoma pancreas
     Dosage: UNK, UNKNOWN
     Route: 065
  3. VCN 01 [Concomitant]
     Indication: Adenocarcinoma pancreas
     Dosage: UNK, UNKNOWN
     Route: 065

REACTIONS (3)
  - Gastrointestinal haemorrhage [Fatal]
  - Pancreatic fistula [Unknown]
  - Gastric ulcer [Unknown]
